FAERS Safety Report 25496822 (Version 2)
Quarter: 2025Q3

REPORT INFORMATION
  Report Type: Report from Study
  Country: US (occurrence: US)
  Receive Date: 20250701
  Receipt Date: 20250731
  Transmission Date: 20251021
  Serious: Yes (Hospitalization)
  Sender: ABBVIE
  Company Number: US-ABBVIE-6344691

PATIENT
  Age: 48 Year
  Sex: Male
  Weight: 101 kg

DRUGS (10)
  1. SKYRIZI [Suspect]
     Active Substance: RISANKIZUMAB-RZAA
     Indication: Crohn^s disease
     Route: 058
     Dates: start: 20250515
  2. SKYRIZI [Suspect]
     Active Substance: RISANKIZUMAB-RZAA
     Indication: Crohn^s disease
     Dosage: END DATE- 2025
     Route: 058
     Dates: start: 20250217
  3. NEXIUM [Concomitant]
     Active Substance: ESOMEPRAZOLE MAGNESIUM
     Indication: Gastrooesophageal reflux disease
     Route: 048
     Dates: start: 20250408
  4. IRON [Concomitant]
     Active Substance: IRON
     Indication: Anaemia
     Route: 048
     Dates: start: 20240610
  5. TYLENOL [Concomitant]
     Active Substance: ACETAMINOPHEN
     Indication: Arthritis
     Route: 048
  6. VITAMIN B12 [Concomitant]
     Active Substance: CYANOCOBALAMIN
     Indication: Vitamin B12 deficiency
     Route: 030
  7. FLUTICASONE [Concomitant]
     Active Substance: FLUTICASONE
     Indication: Multiple allergies
     Route: 045
     Dates: start: 20240521
  8. FAMOTIDINE [Concomitant]
     Active Substance: FAMOTIDINE
     Indication: Gastrooesophageal reflux disease
     Route: 048
     Dates: start: 20250203
  9. VITAMIN D [Concomitant]
     Active Substance: VITAMIN D NOS
     Indication: Vitamin D deficiency
     Route: 048
  10. AZELASTINE [Concomitant]
     Active Substance: AZELASTINE
     Indication: Multiple allergies
     Route: 045
     Dates: start: 20250521

REACTIONS (4)
  - Dehydration [Recovered/Resolved]
  - Hyperhidrosis [Recovering/Resolving]
  - Nausea [Recovered/Resolved]
  - Vomiting [Unknown]

NARRATIVE: CASE EVENT DATE: 20250516
